FAERS Safety Report 24524941 (Version 2)
Quarter: 2024Q4

REPORT INFORMATION
  Report Type: Spontaneous
  Country: US (occurrence: US)
  Receive Date: 20241019
  Receipt Date: 20241109
  Transmission Date: 20250115
  Serious: No
  Sender: LEADING PHARMA
  Company Number: US-LEADINGPHARMA-US-2024LEASPO00460

PATIENT
  Age: 56 Year
  Sex: Female
  Weight: 132 kg

DRUGS (2)
  1. IMIPRAMINE HYDROCHLORIDE [Suspect]
     Active Substance: IMIPRAMINE HYDROCHLORIDE
     Indication: Depression
     Route: 065
     Dates: end: 20241001
  2. LORAZEPAM [Concomitant]
     Active Substance: LORAZEPAM
     Indication: Product used for unknown indication
     Route: 065

REACTIONS (4)
  - Dysgeusia [Not Recovered/Not Resolved]
  - Influenza [Not Recovered/Not Resolved]
  - Product taste abnormal [Unknown]
  - Product odour abnormal [Unknown]

NARRATIVE: CASE EVENT DATE: 20240929
